FAERS Safety Report 9137559 (Version 1)
Quarter: 2013Q1

REPORT INFORMATION
  Report Type: Spontaneous
  Country: US (occurrence: US)
  Receive Date: 20130219
  Receipt Date: 20130219
  Transmission Date: 20140127
  Serious: No
  Sender: FDA-Public Use
  Company Number: US-BRISTOL-MYERS SQUIBB COMPANY-17158379

PATIENT
  Age: 47 Year
  Sex: Female
  Weight: 66.66 kg

DRUGS (9)
  1. ABATACEPT SUBQ INJECTION 125MG/ML [Suspect]
     Indication: RHEUMATOID ARTHRITIS
     Route: 058
  2. ESTRADIOL [Concomitant]
  3. ESTRACE [Concomitant]
     Route: 067
  4. NEURONTIN [Concomitant]
  5. ULTRAM [Concomitant]
     Dosage: 50 MG 2 PILLS Q6HOURS PRN
  6. AMBIEN [Concomitant]
     Dosage: QHS
  7. FOLIC ACID [Concomitant]
  8. ZYRTEC [Concomitant]
  9. PREDNISONE [Concomitant]

REACTIONS (4)
  - Drug dose omission [Unknown]
  - Flushing [Unknown]
  - Musculoskeletal stiffness [Unknown]
  - Weight decreased [Unknown]
